FAERS Safety Report 23708578 (Version 1)
Quarter: 2024Q2

REPORT INFORMATION
  Report Type: Report from Study
  Country: US (occurrence: US)
  Receive Date: 20240404
  Receipt Date: 20240404
  Transmission Date: 20240715
  Serious: No
  Sender: FDA-Public Use
  Company Number: US-TG THERAPEUTICS INC.-TGT003419

PATIENT
  Age: 44 Year
  Sex: Female

DRUGS (1)
  1. UBLITUXIMAB [Suspect]
     Active Substance: UBLITUXIMAB
     Indication: Multiple sclerosis
     Dosage: 450 MILLIGRAM
     Route: 042
     Dates: start: 20231020, end: 20231020

REACTIONS (4)
  - Abdominal pain [Unknown]
  - Nausea [Unknown]
  - Infusion related reaction [Unknown]
  - Incorrect dose administered [Unknown]

NARRATIVE: CASE EVENT DATE: 20231020
